FAERS Safety Report 9934699 (Version 3)
Quarter: 2014Q1

REPORT INFORMATION
  Report Type: Spontaneous
  Country: ES (occurrence: ES)
  Receive Date: 20140228
  Receipt Date: 20140317
  Transmission Date: 20141002
  Serious: Yes (Death)
  Sender: FDA-Public Use
  Company Number: ES-BAYER-2014-030469

PATIENT
  Age: 80 Year
  Sex: Female

DRUGS (1)
  1. ULTRAVIST [Suspect]
     Indication: COMPUTERISED TOMOGRAM
     Dosage: 125 ML, ONCE
     Route: 042
     Dates: start: 20140225, end: 20140225

REACTIONS (2)
  - Cardio-respiratory arrest [Fatal]
  - Feeling hot [Fatal]
